FAERS Safety Report 4461259-8 (Version None)
Quarter: 2004Q3

REPORT INFORMATION
  Report Type: 
  Country: None (occurrence: None)
  Receive Date: 20040928
  Receipt Date: 20040701
  Transmission Date: 20050211
  Serious: Yes (Hospitalization)
  Sender: FDA-Public Use
  Company Number: GR-ABBOTT-04P-066-0265504-00

PATIENT
  Age: 71 Year
  Sex: Male

DRUGS (3)
  1. HUMIRA [Suspect]
     Indication: RHEUMATOID ARTHRITIS
     Route: 058
     Dates: start: 20031201, end: 20040601
  2. HUMIRA [Suspect]
     Dates: start: 20040101
  3. METHOTREXATE [Concomitant]
     Indication: RHEUMATOID ARTHRITIS
     Route: 048

REACTIONS (3)
  - FACE AND MOUTH X-RAY ABNORMAL [None]
  - PSEUDOMONAS INFECTION [None]
  - SPUTUM CULTURE POSITIVE [None]
